FAERS Safety Report 5325344-0 (Version None)
Quarter: 2007Q2

REPORT INFORMATION
  Report Type: 
  Country: None (occurrence: None)
  Receive Date: 20070515
  Receipt Date: 20070506
  Transmission Date: 20071010
  Serious: Yes (Other)
  Sender: FDA-Public Use
  Company Number: US-JNJFOC-20070403394

PATIENT
  Sex: Male
  Weight: 86.9 kg

DRUGS (3)
  1. REMICADE [Suspect]
     Route: 042
     Dates: end: 20070319
  2. REMICADE [Suspect]
     Indication: RHEUMATOID ARTHRITIS
     Route: 042
     Dates: end: 20070319
  3. AZULFIDINE [Concomitant]

REACTIONS (2)
  - INFUSION RELATED REACTION [None]
  - NON-HODGKIN'S LYMPHOMA [None]
